FAERS Safety Report 25261360 (Version 3)
Quarter: 2025Q2

REPORT INFORMATION
  Report Type: Report from Study
  Country: CA (occurrence: CA)
  Receive Date: 20250501
  Receipt Date: 20250514
  Transmission Date: 20250717
  Serious: Yes (Other)
  Sender: SK LIFE SCIENCE
  Company Number: CA-ENDO OPERATIONS LTD.-2025-001108

PATIENT

DRUGS (8)
  1. XCOPRI [Suspect]
     Active Substance: CENOBAMATE
     Indication: Partial seizures
     Route: 048
  2. XCOPRI [Suspect]
     Active Substance: CENOBAMATE
     Dosage: 12.5 MILLIGRAM, DAILY
     Route: 048
     Dates: start: 20250405, end: 20250418
  3. XCOPRI [Suspect]
     Active Substance: CENOBAMATE
     Dosage: 25 MILLIGRAM, DAILY
     Route: 048
     Dates: start: 20250419
  4. LACOSAMIDE [Concomitant]
     Active Substance: LACOSAMIDE
     Indication: Product used for unknown indication
     Dosage: 250 MILLIGRAM, BID
     Route: 065
  5. LAMICTAL [Concomitant]
     Active Substance: LAMOTRIGINE
     Indication: Product used for unknown indication
     Dosage: 100 MILLIGRAM, BID, WEEK 1 REDUCE LAMICTAL BY 25MG EVERY WEEK UNTIL D/C.
     Route: 065
  6. CLOBAZAM [Concomitant]
     Active Substance: CLOBAZAM
     Indication: Product used for unknown indication
     Dosage: 30 MILLIGRAM, BID, AT ONSET OF CENOBAMATE, REDUCE CLOBAZAM 15MG AM AND 30MG HS X 2 WEEKS THEN CLOBAZ
     Route: 065
  7. BRIVARACETAM [Concomitant]
     Active Substance: BRIVARACETAM
     Indication: Product used for unknown indication
     Dosage: 75 MILLIGRAM, BID
     Route: 065
  8. VITAMIN B6 [Concomitant]
     Active Substance: PYRIDOXINE HYDROCHLORIDE
     Indication: Product used for unknown indication
     Route: 065

REACTIONS (19)
  - Choking [Unknown]
  - Seizure [Unknown]
  - Generalised tonic-clonic seizure [Unknown]
  - Seizure [Unknown]
  - Partial seizures [Unknown]
  - Panic reaction [Unknown]
  - Drug interaction [Unknown]
  - Dysphagia [Unknown]
  - Erythema [Unknown]
  - Erythema [Unknown]
  - Ear discomfort [Unknown]
  - Rash [Unknown]
  - Dysarthria [Unknown]
  - Aphasia [Unknown]
  - Speech disorder [Unknown]
  - Gait disturbance [Unknown]
  - Dizziness [Unknown]
  - Speech disorder [Unknown]
  - Somnolence [Unknown]

NARRATIVE: CASE EVENT DATE: 20250401
